FAERS Safety Report 15868109 (Version 3)
Quarter: 2019Q2

REPORT INFORMATION
  Report Type: Spontaneous
  Country: US (occurrence: US)
  Receive Date: 20190125
  Receipt Date: 20190401
  Transmission Date: 20190711
  Serious: Yes (Death)
  Sender: FDA-Public Use
  Company Number: US-PFIZER INC-2019035971

PATIENT
  Age: 21 Year
  Sex: Female

DRUGS (1)
  1. SUTENT [Suspect]
     Active Substance: SUNITINIB MALATE
     Dosage: 37.5 MG, UNK
     Dates: start: 20190107

REACTIONS (1)
  - Death [Fatal]
